FAERS Safety Report 12505717 (Version 1)
Quarter: 2016Q2

REPORT INFORMATION
  Report Type: Spontaneous
  Country: US (occurrence: US)
  Receive Date: 20160628
  Receipt Date: 20160628
  Transmission Date: 20160815
  Serious: No
  Sender: FDA-Public Use
  Company Number: US-BAYER-2016-116554

PATIENT
  Sex: Male

DRUGS (1)
  1. FINACEA [Suspect]
     Active Substance: AZELAIC ACID
     Indication: ROSACEA
     Dosage: UNK
     Route: 061
     Dates: start: 2016, end: 2016

REACTIONS (5)
  - Skin exfoliation [Unknown]
  - Skin irritation [Unknown]
  - Erythema [Unknown]
  - Swelling face [Unknown]
  - Burning sensation [Unknown]

NARRATIVE: CASE EVENT DATE: 20160607
